FAERS Safety Report 8542518-6 (Version None)
Quarter: 2012Q3

REPORT INFORMATION
  Report Type: 
  Country: None (occurrence: None)
  Receive Date: 20120726
  Receipt Date: 20110810
  Transmission Date: 20120928
  Serious: Yes (Hospitalization)
  Sender: FDA-Public Use
  Company Number: US-ASTRAZENECA-2011SE47772

PATIENT
  Age: 46 Year
  Sex: Female
  Weight: 74.4 kg

DRUGS (4)
  1. SEROQUEL [Suspect]
     Indication: BIPOLAR DISORDER
     Route: 048
     Dates: start: 20090101
  2. EFFEXOR [Concomitant]
     Dates: end: 20110701
  3. SEROQUEL [Suspect]
     Route: 048
     Dates: start: 20110101
  4. WELLBUTRIN [Concomitant]
     Dates: end: 20110701

REACTIONS (6)
  - ABDOMINAL DISTENSION [None]
  - ORTHOPNOEA [None]
  - OEDEMA PERIPHERAL [None]
  - PAIN IN EXTREMITY [None]
  - LIMB DISCOMFORT [None]
  - MANIA [None]
